FAERS Safety Report 6023063-9 (Version None)
Quarter: 2008Q4

REPORT INFORMATION
  Report Type: 
  Country: None (occurrence: None)
  Receive Date: 20081230
  Receipt Date: 20020131
  Transmission Date: 20090506
  Serious: No
  Sender: FDA-Public Use
  Company Number: US-ABBOTT-08P-163-0461319-00

PATIENT
  Age: 10 Month

DRUGS (1)
  1. CEFDINIR [Suspect]
     Indication: DRUG USE FOR UNKNOWN INDICATION
     Dosage: TEN DAY THERAPY

REACTIONS (1)
  - FAECES DISCOLOURED [None]
